FAERS Safety Report 6536845-1 (Version None)
Quarter: 2010Q1

REPORT INFORMATION
  Report Type: 
  Country: None (occurrence: None)
  Receive Date: 20100105
  Receipt Date: 20091221
  Transmission Date: 20100710
  Serious: Yes (Other)
  Sender: FDA-Public Use
  Company Number: 2009003908

PATIENT
  Age: 54 Year
  Sex: Male

DRUGS (2)
  1. TARCEVA [Suspect]
     Indication: PANCREATIC CARCINOMA
     Dosage: ORAL
     Route: 048
     Dates: start: 20080618, end: 20090105
  2. GEMZAR [Suspect]
     Indication: PANCREATIC CARCINOMA
     Dosage: (1.2 GM, 1X PER CYCLICAL)
     Dates: start: 20080618, end: 20090105

REACTIONS (5)
  - HAEMOLYTIC ANAEMIA [None]
  - HAEMOLYTIC URAEMIC SYNDROME [None]
  - HYPERTENSION [None]
  - RENAL FAILURE [None]
  - THROMBOCYTOPENIA [None]
